FAERS Safety Report 8263248-4 (Version None)
Quarter: 2012Q2

REPORT INFORMATION
  Report Type: 
  Country: None (occurrence: None)
  Receive Date: 20120405
  Receipt Date: 20120328
  Transmission Date: 20120825
  Serious: Yes (Death)
  Sender: FDA-Public Use
  Company Number: IL-VALEANT-2012VX001460

PATIENT

DRUGS (4)
  1. FLUOROURACIL [Suspect]
     Indication: GASTRIC CANCER
     Route: 042
  2. CISPLATIN [Suspect]
     Indication: GASTRIC CANCER
     Route: 042
  3. SALINE [Concomitant]
     Route: 065
  4. DOCETAXEL [Suspect]
     Indication: GASTRIC CANCER
     Route: 042

REACTIONS (1)
  - THROMBOSIS [None]
